FAERS Safety Report 23763326 (Version 1)
Quarter: 2024Q2

REPORT INFORMATION
  Report Type: Spontaneous
  Country: CH (occurrence: CH)
  Receive Date: 20240419
  Receipt Date: 20240419
  Transmission Date: 20240716
  Serious: Yes (Hospitalization)
  Sender: FDA-Public Use
  Company Number: None

PATIENT
  Age: 72 Year
  Sex: Male

DRUGS (12)
  1. CIPROFLOXACIN [Suspect]
     Active Substance: CIPROFLOXACIN
     Indication: Product used for unknown indication
     Dosage: 750 MG N/A DOSE EVERY 12 HOUR
     Route: 048
     Dates: start: 20240320, end: 20240324
  2. CLINDAMYCIN [Suspect]
     Active Substance: CLINDAMYCIN
     Indication: Product used for unknown indication
     Dosage: 600 MG N/A DOSE EVERY 8 HOUR
     Route: 048
     Dates: start: 20240320, end: 20240325
  3. CEFTAZIDIME [Suspect]
     Active Substance: CEFTAZIDIME
     Indication: Product used for unknown indication
     Dosage: 2 G N/A DOSE EVERY 8 HOUR
     Route: 042
     Dates: start: 20240324, end: 20240325
  4. FLAGYL [Suspect]
     Active Substance: METRONIDAZOLE\METRONIDAZOLE HYDROCHLORIDE
     Indication: Product used for unknown indication
     Dosage: 500 MG N/A DOSE EVERY 8 HOUR
     Route: 048
     Dates: start: 20240318, end: 20240321
  5. VANCOMYCIN [Suspect]
     Active Substance: VANCOMYCIN
     Indication: Product used for unknown indication
     Dosage: 1000 MG N/A DOSE EVERY 12 HOUR
     Route: 042
     Dates: start: 20240315, end: 20240316
  6. VANCOMYCIN [Suspect]
     Active Substance: VANCOMYCIN
     Dosage: 1200 MG N/A DOSE EVERY 12 HOUR
     Route: 042
     Dates: start: 20240317, end: 20240317
  7. VANCOMYCIN [Suspect]
     Active Substance: VANCOMYCIN
     Dosage: 1500 MG N/A DOSE EVERY 12 HOUR
     Route: 042
     Dates: start: 20240318, end: 20240320
  8. ARIXTRA [Concomitant]
     Active Substance: FONDAPARINUX SODIUM
     Indication: Product used for unknown indication
     Dosage: 2.5 MG N/A DOSE EVERY 1 DAY
     Route: 058
  9. DAFALGAN [Concomitant]
     Active Substance: ACETAMINOPHEN
     Indication: Product used for unknown indication
     Dosage: 1000 MG N/A DOSE EVERY 8 HOUR
     Route: 048
  10. NOVORAPID [Concomitant]
     Active Substance: INSULIN ASPART
     Indication: Product used for unknown indication
     Route: 058
  11. RIVOTRIL [Concomitant]
     Active Substance: CLONAZEPAM
     Indication: Product used for unknown indication
     Dosage: 2 MG N/A DOSE EVERY 1 DAY
     Route: 048
  12. TRESIBA [Concomitant]
     Active Substance: INSULIN DEGLUDEC
     Indication: Product used for unknown indication
     Dosage: UNK
     Route: 058

REACTIONS (4)
  - Acute generalised exanthematous pustulosis [Not Recovered/Not Resolved]
  - Erythema [Not Recovered/Not Resolved]
  - Pustule [Not Recovered/Not Resolved]
  - Oral mucosa erosion [Not Recovered/Not Resolved]

NARRATIVE: CASE EVENT DATE: 20240324
